FAERS Safety Report 23391284 (Version 1)
Quarter: 2024Q1

REPORT INFORMATION
  Report Type: Spontaneous
  Country: US (occurrence: US)
  Receive Date: 20240111
  Receipt Date: 20240111
  Transmission Date: 20240409
  Serious: Yes (Other)
  Sender: FDA-Public Use
  Company Number: US-TAKEDA-2024TUS002475

PATIENT
  Sex: Male

DRUGS (1)
  1. PENTASA [Suspect]
     Active Substance: MESALAMINE
     Indication: Product used for unknown indication
     Dosage: 2 DOSAGE FORM, QID
     Route: 065

REACTIONS (3)
  - Crohn^s disease [Unknown]
  - Inability to afford medication [Unknown]
  - Insurance issue [Unknown]
